FAERS Safety Report 8735592 (Version 3)
Quarter: 2012Q4

REPORT INFORMATION
  Report Type: 
  Country: US (occurrence: US)
  Receive Date: 20120822
  Receipt Date: 20120921
  Transmission Date: 20130627
  Serious: No
  Sender: FDA-Public Use
  Company Number: US-PFIZER INC-2012204827

PATIENT
  Age: 74 Year
  Sex: Female
  Weight: 83.9 kg

DRUGS (4)
  1. CELEBREX [Suspect]
     Indication: ARTHRALGIA
     Dosage: 200 mg, daily
     Dates: start: 20120802, end: 201208
  2. CELEBREX [Suspect]
     Indication: ARTHRITIS
  3. LIPITOR [Concomitant]
     Dosage: 200 mg, daily
  4. MIACALCIN [Concomitant]
     Indication: OSTEOPENIA
     Dosage: UNK, daily

REACTIONS (2)
  - Drug ineffective [Unknown]
  - Product counterfeit [Unknown]
